FAERS Safety Report 7467743-7 (Version None)
Quarter: 2011Q2

REPORT INFORMATION
  Report Type: 
  Country: None (occurrence: None)
  Receive Date: 20110509
  Receipt Date: 20110107
  Transmission Date: 20111010
  Serious: No
  Sender: FDA-Public Use
  Company Number: US-ALEXION-A201100041

PATIENT
  Sex: Male

DRUGS (2)
  1. LOVENOX [Concomitant]
     Dosage: UNK
     Dates: end: 20110111
  2. SOLIRIS [Suspect]
     Indication: PAROXYSMAL NOCTURNAL HAEMOGLOBINURIA
     Dosage: UNK
     Route: 042
     Dates: start: 20110104

REACTIONS (3)
  - TACHYCARDIA [None]
  - RHINORRHOEA [None]
  - ABDOMINAL DISTENSION [None]
